FAERS Safety Report 21330335 (Version 2)
Quarter: 2022Q3

REPORT INFORMATION
  Report Type: Spontaneous
  Country: US (occurrence: US)
  Receive Date: 20220913
  Receipt Date: 20220923
  Transmission Date: 20221027
  Serious: Yes (Other)
  Sender: FDA-Public Use
  Company Number: US-PFIZER INC-202201142108

PATIENT
  Age: 79 Year
  Sex: Female
  Weight: 63.5 kg

DRUGS (3)
  1. ZITHROMAX [Suspect]
     Active Substance: AZITHROMYCIN DIHYDRATE
     Dosage: 250MG FIRST DAY TOOK TWO THEN ONE FOR NEXT FOUR DAYS BY MOUTH
     Route: 048
  2. KEFLEX [Concomitant]
     Active Substance: CEPHALEXIN
     Dosage: 500 MG, 3X/DAY
     Route: 048
     Dates: start: 20220829, end: 20220907
  3. VICKS DAYQUIL [Concomitant]
     Active Substance: DEXTROMETHORPHAN HYDROBROMIDE\GUAIFENESIN
     Dosage: UNK, 4X/DAY (TWO CAPSULES TWICE A DAY BY MOUTH)
     Route: 048

REACTIONS (3)
  - Drug ineffective [Unknown]
  - Oropharyngeal pain [Unknown]
  - Glycosylated haemoglobin increased [Recovered/Resolved]

NARRATIVE: CASE EVENT DATE: 20220829
